FAERS Safety Report 18444593 (Version 1)
Quarter: 2020Q4

REPORT INFORMATION
  Report Type: Spontaneous
  Country: US (occurrence: US)
  Receive Date: 20201030
  Receipt Date: 20201030
  Transmission Date: 20210114
  Serious: Yes (Other)
  Sender: FDA-Public Use
  Company Number: US-SA-2020SA301549

PATIENT

DRUGS (1)
  1. GOLD BOND EXTRA STRENGTH [Suspect]
     Active Substance: MENTHOL

REACTIONS (4)
  - Lung neoplasm malignant [Unknown]
  - Pain [Unknown]
  - Loss of personal independence in daily activities [Unknown]
  - Mesothelioma [Not Recovered/Not Resolved]

NARRATIVE: CASE EVENT DATE: 20200903
